FAERS Safety Report 24170407 (Version 4)
Quarter: 2025Q1

REPORT INFORMATION
  Report Type: Spontaneous
  Country: FR (occurrence: FR)
  Receive Date: 20240803
  Receipt Date: 20250117
  Transmission Date: 20250408
  Serious: Yes (Congenital Anomaly)
  Sender: TEVA
  Company Number: None

PATIENT
  Age: 33 Week
  Sex: Female
  Weight: 3.405 kg

DRUGS (13)
  1. ESOMEPRAZOLE [Suspect]
     Active Substance: ESOMEPRAZOLE
     Indication: Cystic fibrosis
     Route: 064
     Dates: start: 20231029
  2. INNOVAIR [Suspect]
     Active Substance: BECLOMETHASONE DIPROPIONATE\FORMOTEROL
     Indication: Cystic fibrosis
     Dosage: INNOVAIR NEXTHALER 200 MICROGRAMS/6 MICROGRAMS PER INHALATION
     Route: 064
     Dates: start: 20231029
  3. KALYDECO [Suspect]
     Active Substance: IVACAFTOR
     Indication: Cystic fibrosis
     Route: 064
     Dates: start: 20231029
  4. COLISTIMETHATE SODIUM [Suspect]
     Active Substance: COLISTIMETHATE SODIUM
     Indication: Cystic fibrosis
     Dosage: 1 MILLION INTERNATIONAL UNITS (IU) POWDER FOR SOLUTION FOR INHALATION BY NEBULIZER, ?DOSE: 2 M[IU]
     Route: 064
     Dates: start: 20231029
  5. SINGULAIR [Suspect]
     Active Substance: MONTELUKAST SODIUM
     Indication: Cystic fibrosis
     Route: 064
     Dates: start: 20240516
  6. IPRATROPIUM BROMIDE\FENOTEROL HYDROBROMIDE [Suspect]
     Active Substance: FENOTEROL HYDROBROMIDE\IPRATROPIUM BROMIDE
     Indication: Cystic fibrosis
     Route: 064
     Dates: start: 20240516
  7. ELEXACAFTOR\IVACAFTOR\TEZACAFTOR [Suspect]
     Active Substance: ELEXACAFTOR\IVACAFTOR\TEZACAFTOR
     Indication: Cystic fibrosis
     Dosage: 75 MG/50 MG/100 MG
     Route: 064
     Dates: start: 20231029
  8. ALBUTEROL [Suspect]
     Active Substance: ALBUTEROL
     Indication: Cystic fibrosis
     Route: 064
     Dates: start: 20231029, end: 20240510
  9. CETIRIZINE [Suspect]
     Active Substance: CETIRIZINE HYDROCHLORIDE
     Indication: Cystic fibrosis
     Dosage: CETIRIZINE HYDROCHLORIDE
     Route: 064
     Dates: start: 20231029
  10. PULMOZYME [Suspect]
     Active Substance: DORNASE ALFA
     Indication: Cystic fibrosis
     Dosage: 2500 U/2.5 ML, SOLUTION FOR INHALATION BY NEBULIZER IN AMPOULE
     Route: 064
     Dates: start: 20231029, end: 20240516
  11. CREON [Suspect]
     Active Substance: PANCRELIPASE AMYLASE\PANCRELIPASE LIPASE\PANCRELIPASE PROTEASE
     Indication: Cystic fibrosis
     Dosage: 25,000 U, GASTRO-RESISTANT GRANULES IN CAPSULES
     Route: 064
     Dates: start: 20231029
  12. PANCRELIPASE [Suspect]
     Active Substance: PANCRELIPASE
     Indication: Cystic fibrosis
     Dosage: 40000 U
     Route: 064
     Dates: start: 20231029
  13. SPIRIVA RESPIMAT [Suspect]
     Active Substance: TIOTROPIUM BROMIDE
     Indication: Cystic fibrosis
     Route: 064
     Dates: start: 20231029

REACTIONS (5)
  - Left-to-right cardiac shunt [Not Recovered/Not Resolved]
  - Foetal macrosomia [Recovered/Resolved]
  - Maternal exposure during pregnancy [Recovered/Resolved]
  - Amniotic fluid index increased [Recovered/Resolved]
  - Conjunctivitis [Not Recovered/Not Resolved]

NARRATIVE: CASE EVENT DATE: 20240101
